FAERS Safety Report 18376705 (Version 2)
Quarter: 2020Q4

REPORT INFORMATION
  Report Type: Spontaneous
  Country: US (occurrence: US)
  Receive Date: 20201013
  Receipt Date: 20201118
  Transmission Date: 20210114
  Serious: Yes (Other)
  Sender: FDA-Public Use
  Company Number: US-ROCHE-2669063

PATIENT
  Age: 56 Year
  Sex: Female

DRUGS (3)
  1. TUCATINIB [Suspect]
     Active Substance: TUCATINIB
     Indication: BREAST CANCER FEMALE
     Dosage: 8 AM AND 5 PM WITH FOOD
     Route: 065
  2. XELODA [Suspect]
     Active Substance: CAPECITABINE
     Indication: BREAST CANCER FEMALE
     Dosage: FOR 14 DAYS, 7 DAYS OFF
     Route: 048
  3. HERCEPTIN [Suspect]
     Active Substance: TRASTUZUMAB
     Indication: BREAST CANCER FEMALE
     Route: 042

REACTIONS (12)
  - Weight increased [Unknown]
  - Thirst [Unknown]
  - White blood cell count decreased [Recovering/Resolving]
  - Neuralgia [Unknown]
  - Fatigue [Unknown]
  - Malaise [Unknown]
  - Haematochezia [Unknown]
  - Liver disorder [Unknown]
  - Recurrent cancer [Unknown]
  - Dehydration [Unknown]
  - Diarrhoea [Not Recovered/Not Resolved]
  - Weight decreased [Unknown]
